FAERS Safety Report 23859888 (Version 1)
Quarter: 2024Q2

REPORT INFORMATION
  Report Type: Spontaneous
  Country: JP (occurrence: None)
  Receive Date: 20240515
  Receipt Date: 20240515
  Transmission Date: 20240716
  Serious: Yes (Other)
  Sender: FDA-Public Use
  Company Number: 2024A107785

PATIENT
  Age: 74 Year
  Sex: Male

DRUGS (1)
  1. DURVALUMAB [Suspect]
     Active Substance: DURVALUMAB
     Indication: Squamous cell carcinoma
     Route: 042

REACTIONS (3)
  - Myositis [Recovered/Resolved]
  - Organising pneumonia [Recovered/Resolved]
  - Myasthenia gravis [Recovered/Resolved]
